FAERS Safety Report 15532868 (Version 1)
Quarter: 2018Q4

REPORT INFORMATION
  Report Type: Spontaneous
  Country: US (occurrence: US)
  Receive Date: 20181019
  Receipt Date: 20181019
  Transmission Date: 20190205
  Serious: Yes (Hospitalization, Other)
  Sender: FDA-Public Use
  Company Number: US-APOTEX-2018AP023069

PATIENT
  Age: 22 Year
  Sex: Male

DRUGS (1)
  1. ALBUTEROL SULFATE  INHALATION SOLUTION [Suspect]
     Active Substance: ALBUTEROL SULFATE
     Indication: ASTHMA
     Dosage: 2 PUFFS EVERY SIX HOURS FOR A TOTAL OF THREE TREATMENTS
     Route: 050

REACTIONS (1)
  - Stevens-Johnson syndrome [Recovering/Resolving]
